FAERS Safety Report 6725146-4 (Version None)
Quarter: 2010Q2

REPORT INFORMATION
  Report Type: 
  Country: None (occurrence: None)
  Receive Date: 20100514
  Receipt Date: 20100503
  Transmission Date: 20101027
  Serious: Yes (Other)
  Sender: FDA-Public Use
  Company Number: US-SHIRE-ALL1-2010-02592

PATIENT

DRUGS (9)
  1. FOSRENOL [Suspect]
     Indication: HYPERPHOSPHATAEMIA
     Dosage: 1000 MG, 2X/DAY:BID
     Route: 048
     Dates: start: 20081104, end: 20100101
  2. RENVELA [Concomitant]
     Dosage: 800 MG, OTHER (4 TO 6 TIMES DAILY)
     Route: 048
     Dates: start: 20080401
  3. VYTORIN [Concomitant]
     Indication: BLOOD CHOLESTEROL INCREASED
     Dosage: 800 MG (10 - 80 MG TABLETS), 1X/DAY:QD
     Route: 048
  4. MULTAQ [Concomitant]
     Indication: DRUG USE FOR UNKNOWN INDICATION
     Dosage: 400 MG, 2X/DAY:BID
     Route: 048
  5. LEVOTHROID [Concomitant]
     Indication: THYROID DISORDER
     Dosage: 125 MEQ, 1X/DAY:QD
     Route: 048
  6. COUMADIN [Concomitant]
     Indication: CARDIAC FAILURE CONGESTIVE
     Dosage: 2 MG, 1X/DAY:QD
     Route: 048
     Dates: start: 19880101
  7. COREG [Concomitant]
     Indication: CARDIAC DISORDER
     Dosage: 3.125 MG, 2X/DAY:BID
     Route: 048
  8. LISINOPRIL [Concomitant]
     Indication: HYPERTENSION
     Dosage: 5 MG, 1X/DAY:QD
     Route: 048
  9. VITAL-D RX [Concomitant]
     Indication: DRUG USE FOR UNKNOWN INDICATION
     Dosage: UNK, 1X/DAY:QD
     Route: 048
     Dates: start: 20100201

REACTIONS (1)
  - CHOKING [None]
